FAERS Safety Report 10310988 (Version 1)
Quarter: 2014Q3

REPORT INFORMATION
  Report Type: Spontaneous
  Country: PL (occurrence: PL)
  Receive Date: 20140717
  Receipt Date: 20140717
  Transmission Date: 20150326
  Serious: Yes (Other)
  Sender: FDA-Public Use
  Company Number: PL-WATSON-2014-15302

PATIENT
  Age: 52 Year
  Sex: Female
  Weight: 54 kg

DRUGS (3)
  1. FLUOROURACIL 5 FU [Suspect]
     Active Substance: FLUOROURACIL
     Indication: GASTRIC CANCER
     Dosage: 940 MG, UNKNOWN
     Route: 042
     Dates: start: 20131115
  2. DOXORUBICIN (UNKNOWN) [Suspect]
     Active Substance: DOXORUBICIN
     Indication: GASTRIC CANCER
     Dosage: 45 MG, UNKNOWN
     Route: 042
     Dates: start: 20131115
  3. MITOMICINA [Suspect]
     Active Substance: MITOMYCIN
     Indication: GASTRIC CANCER
     Dosage: 15 MG, UNKNOWN; MAH: NORDIC PHARMA
     Route: 042
     Dates: start: 20131115

REACTIONS (1)
  - Neutropenia [Recovering/Resolving]

NARRATIVE: CASE EVENT DATE: 20140217
